FAERS Safety Report 18387532 (Version 5)
Quarter: 2020Q4

REPORT INFORMATION
  Report Type: Report from Study
  Country: US (occurrence: US)
  Receive Date: 20201015
  Receipt Date: 20201217
  Transmission Date: 20210114
  Serious: Yes (Other)
  Sender: FDA-Public Use
  Company Number: US-JNJFOC-20200933099

PATIENT
  Age: 70 Year
  Sex: Female
  Weight: 76.91 kg

DRUGS (19)
  1. METHYLPREDNISOLONE. [Concomitant]
     Active Substance: METHYLPREDNISOLONE
     Indication: PRODUCT USED FOR UNKNOWN INDICATION
     Route: 048
     Dates: start: 20200909
  2. PROLIA [Concomitant]
     Active Substance: DENOSUMAB
     Indication: PRODUCT USED FOR UNKNOWN INDICATION
     Dosage: 60MG/1ML
     Route: 058
     Dates: start: 20190306
  3. IMBRUVICA [Suspect]
     Active Substance: IBRUTINIB
     Indication: NON-HODGKIN^S LYMPHOMA
     Route: 048
  4. IMBRUVICA [Interacting]
     Active Substance: IBRUTINIB
     Indication: LYMPHOPLASMACYTOID LYMPHOMA/IMMUNOCYTOMA
     Route: 048
  5. IMBRUVICA [Interacting]
     Active Substance: IBRUTINIB
     Route: 048
     Dates: start: 20200611
  6. XARELTO [Interacting]
     Active Substance: RIVAROXABAN
     Indication: PRODUCT USED FOR UNKNOWN INDICATION
     Route: 048
     Dates: start: 20170823
  7. IMBRUVICA [Interacting]
     Active Substance: IBRUTINIB
     Route: 048
     Dates: start: 202006
  8. OMEPRAZOLE. [Concomitant]
     Active Substance: OMEPRAZOLE
     Indication: PRODUCT USED FOR UNKNOWN INDICATION
  9. OLOXACIN [Concomitant]
     Indication: PRODUCT USED FOR UNKNOWN INDICATION
     Dosage: OPHTHALMIC SOLUTION  FOR 5 DAY
  10. LORAZEPAM. [Concomitant]
     Active Substance: LORAZEPAM
     Indication: ANXIETY
     Route: 048
     Dates: start: 20200625, end: 20200628
  11. VITAMIN D3 [Concomitant]
     Active Substance: CHOLECALCIFEROL
     Indication: PRODUCT USED FOR UNKNOWN INDICATION
     Dosage: 25MCG(1000 UT)
     Route: 048
     Dates: start: 20190618
  12. XARELTO [Interacting]
     Active Substance: RIVAROXABAN
     Route: 048
  13. MIRALAX [Concomitant]
     Active Substance: POLYETHYLENE GLYCOL 3350
     Indication: PRODUCT USED FOR UNKNOWN INDICATION
     Dosage: GM/SCOOP,MIX 1 CAPFUL(17GM) IN 8 OUNCES OF WATER.JUICE, OR TEA AND DRINK DAILY.
     Route: 048
     Dates: start: 20160330
  14. IMBRUVICA [Interacting]
     Active Substance: IBRUTINIB
     Dosage: PO, QD
     Route: 048
     Dates: start: 20200629
  15. IMBRUVICA [Interacting]
     Active Substance: IBRUTINIB
     Route: 048
     Dates: start: 20200412, end: 20201023
  16. POTASSIUM CHLORIDE. [Concomitant]
     Active Substance: POTASSIUM CHLORIDE
     Indication: PRODUCT USED FOR UNKNOWN INDICATION
     Dosage: CRYS ER
     Route: 048
     Dates: start: 20160603
  17. SERTRALINE HCL [Concomitant]
     Active Substance: SERTRALINE HYDROCHLORIDE
     Indication: PRODUCT USED FOR UNKNOWN INDICATION
     Route: 048
     Dates: start: 20200603
  18. IMBRUVICA [Interacting]
     Active Substance: IBRUTINIB
     Dosage: 3X 140MG CAPSULES DAILY
     Route: 048
     Dates: end: 2020
  19. MAGNESIUM [Concomitant]
     Active Substance: MAGNESIUM
     Indication: PRODUCT USED FOR UNKNOWN INDICATION
     Route: 048
     Dates: start: 20200303

REACTIONS (16)
  - Drug interaction [Not Recovered/Not Resolved]
  - Mean platelet volume increased [Unknown]
  - Atrial fibrillation [Unknown]
  - Haematotympanum [Recovered/Resolved]
  - Blood osmolarity increased [Unknown]
  - Anion gap decreased [Unknown]
  - Rash [Unknown]
  - Mean cell haemoglobin concentration decreased [Unknown]
  - Nausea [Recovering/Resolving]
  - Endometrial cancer [Unknown]
  - Blood calcium decreased [Unknown]
  - Blood urine present [Recovering/Resolving]
  - Blood albumin decreased [Unknown]
  - Fatigue [Recovered/Resolved]
  - Haematotympanum [Not Recovered/Not Resolved]
  - Ear haemorrhage [Recovering/Resolving]

NARRATIVE: CASE EVENT DATE: 2020
